FAERS Safety Report 8443805-2 (Version None)
Quarter: 2012Q2

REPORT INFORMATION
  Report Type: 
  Country: None (occurrence: None)
  Receive Date: 20120323
  Receipt Date: 20110810
  Transmission Date: 20120825
  Serious: Yes (Other)
  Sender: FDA-Public Use
  Company Number: 163-21880-11061613

PATIENT
  Age: 57 Year
  Sex: Female
  Weight: 71.2147 kg

DRUGS (8)
  1. DECADRON [Concomitant]
  2. ZEMPLAR (PARCALCITOL) [Concomitant]
  3. REVLIMID [Suspect]
     Indication: MULTIPLE MYELOMA
     Dosage: 10 MG, DAILY FOR 14 DAYS, PO
     Route: 048
     Dates: start: 20101001
  4. PROTONIX [Concomitant]
  5. NORVASC [Concomitant]
  6. ASPIRIN [Concomitant]
  7. PROZAC [Concomitant]
  8. PENTAMIDINE (PENTAMIDINE) [Concomitant]

REACTIONS (1)
  - THROMBOPHLEBITIS SUPERFICIAL [None]
